FAERS Safety Report 19106299 (Version 6)
Quarter: 2021Q3

REPORT INFORMATION
  Report Type: Report from Study
  Country: US (occurrence: US)
  Receive Date: 20210407
  Receipt Date: 20210915
  Transmission Date: 20211014
  Serious: Yes (Other)
  Sender: FDA-Public Use
  Company Number: US-TAIHO ONCOLOGY  INC-EU-2021-00994

PATIENT
  Age: 72 Year
  Sex: Female

DRUGS (8)
  1. REMERON [Concomitant]
     Active Substance: MIRTAZAPINE
  2. LEVOTHYROXINE. [Concomitant]
     Active Substance: LEVOTHYROXINE
  3. LYRICA [Concomitant]
     Active Substance: PREGABALIN
  4. LONSURF [Suspect]
     Active Substance: TIPIRACIL HYDROCHLORIDE\TRIFLURIDINE
     Dosage: DOSE, FREQUENCY AND CYCLE UNKNOWN.
     Route: 048
     Dates: end: 20210702
  5. FENTANYL. [Concomitant]
     Active Substance: FENTANYL
  6. LONSURF [Suspect]
     Active Substance: TIPIRACIL HYDROCHLORIDE\TRIFLURIDINE
     Indication: COLON CANCER
     Dosage: CYCLE UNKNOWN
     Route: 048
     Dates: start: 20210311
  7. NOVOLIN NOS [Concomitant]
     Active Substance: INSULIN HUMAN
  8. LEVOTHYROXIN [Concomitant]
     Active Substance: LEVOTHYROXINE

REACTIONS (4)
  - Malaise [Not Recovered/Not Resolved]
  - Oedema peripheral [Unknown]
  - Nausea [Not Recovered/Not Resolved]
  - Vomiting [Not Recovered/Not Resolved]
